FAERS Safety Report 14477530 (Version 1)
Quarter: 2018Q1

REPORT INFORMATION
  Report Type: Report from Study
  Country: US (occurrence: US)
  Receive Date: 20180201
  Receipt Date: 20180201
  Transmission Date: 20180509
  Serious: No
  Sender: FDA-Public Use
  Company Number: US-EXELIXIS-CABO-17010872

PATIENT
  Age: 73 Year

DRUGS (3)
  1. AVASTIN [Concomitant]
     Active Substance: BEVACIZUMAB
  2. CABOMETYX [Suspect]
     Active Substance: CABOZANTINIB S-MALATE
     Indication: RENAL CANCER
     Dosage: 60 MG, QD
     Route: 048
     Dates: start: 201709, end: 20170925
  3. INTERFERON [Concomitant]
     Active Substance: INTERFERON

REACTIONS (3)
  - Asthenia [Unknown]
  - Drug intolerance [Unknown]
  - Dehydration [Unknown]

NARRATIVE: CASE EVENT DATE: 20170925
